FAERS Safety Report 5752323-1 (Version None)
Quarter: 2008Q2

REPORT INFORMATION
  Report Type: 
  Country: None (occurrence: None)
  Receive Date: 20080529
  Receipt Date: 20080523
  Transmission Date: 20081010
  Serious: Yes (Disabling, Other)
  Sender: FDA-Public Use
  Company Number: JP-ASTRAZENECA-2008AP03970

PATIENT
  Age: 57 Year
  Sex: Female

DRUGS (15)
  1. FOSCAVIR INFUSION SOLUTION [Suspect]
     Indication: CYTOMEGALOVIRUS CHORIORETINITIS
     Dosage: DOSE UNKNOWN
     Route: 041
     Dates: end: 20070508
  2. FOSCAVIR INFUSION SOLUTION [Suspect]
     Route: 041
     Dates: start: 20070606, end: 20070607
  3. FOSCAVIR INFUSION SOLUTION [Suspect]
     Route: 041
     Dates: start: 20070608, end: 20070608
  4. FOSCAVIR INFUSION SOLUTION [Suspect]
     Route: 041
     Dates: start: 20070609, end: 20070614
  5. STOCRIN [Concomitant]
     Dosage: FREQUENCY UNKNOWN
     Route: 048
     Dates: start: 20070514, end: 20080331
  6. EPZICOM [Concomitant]
     Route: 048
     Dates: start: 20070514, end: 20080331
  7. DENOSINE [Concomitant]
     Indication: CYTOMEGALOVIRUS CHORIORETINITIS
     Dosage: DOSE UNKNOWN
     Route: 041
     Dates: start: 20070522, end: 20070605
  8. ZITHROMAX [Concomitant]
     Indication: ANTIBIOTIC PROPHYLAXIS
     Route: 048
     Dates: start: 20070406, end: 20080331
  9. BAKTAR [Concomitant]
     Indication: PNEUMONIA
     Route: 048
     Dates: start: 20070406, end: 20080331
  10. NORVASC [Concomitant]
     Indication: RENAL DISORDER
     Route: 048
     Dates: start: 20070430, end: 20080331
  11. LENDORMIN [Concomitant]
     Indication: INSOMNIA
     Route: 048
     Dates: start: 20070506, end: 20080331
  12. ITRACONAZOLE [Concomitant]
     Indication: ANTIFUNGAL PROPHYLAXIS
     Route: 065
     Dates: start: 20070515, end: 20070614
  13. ITRACONAZOLE [Concomitant]
     Route: 065
     Dates: start: 20070626, end: 20080331
  14. VALGANCICLOVIR HCL [Concomitant]
     Indication: CYTOMEGALOVIRUS CHORIORETINITIS
     Route: 048
     Dates: start: 20070517, end: 20070522
  15. VALGANCICLOVIR HCL [Concomitant]
     Route: 048
     Dates: start: 20070629, end: 20070724

REACTIONS (3)
  - BRONCHOPULMONARY ASPERGILLOSIS [None]
  - CYTOMEGALOVIRUS CHORIORETINITIS [None]
  - RENAL IMPAIRMENT [None]
